FAERS Safety Report 11317576 (Version 1)
Quarter: 2015Q3

REPORT INFORMATION
  Report Type: Spontaneous
  Country: US (occurrence: US)
  Receive Date: 20150728
  Receipt Date: 20150728
  Transmission Date: 20151125
  Serious: Yes (Death, Hospitalization, Other)
  Sender: FDA-Public Use
  Company Number: US-TEVA-580879USA

PATIENT
  Age: 19 Year
  Sex: Male
  Weight: 72 kg

DRUGS (7)
  1. DAPTOMYCIN. [Suspect]
     Active Substance: DAPTOMYCIN
     Indication: ENTEROCOCCAL INFECTION
     Dosage: 8 MG/KG/DAY
     Route: 065
  2. LINEZOLID. [Suspect]
     Active Substance: LINEZOLID
     Indication: ENTEROCOCCAL INFECTION
     Route: 048
  3. QUINUPRISTIN, DALFOPRISTIN [Suspect]
     Active Substance: DALFOPRISTIN\QUINUPRISTIN
     Indication: ENTEROCOCCAL INFECTION
     Route: 065
  4. DAPTOMYCIN. [Suspect]
     Active Substance: DAPTOMYCIN
     Indication: ENTEROCOCCAL INFECTION
     Dosage: 10 MG/KG/DAY
     Route: 065
  5. TIGECYCLINE. [Suspect]
     Active Substance: TIGECYCLINE
     Indication: ENTEROCOCCAL INFECTION
     Route: 065
  6. AMPICILLIN [Suspect]
     Active Substance: AMPICILLIN
     Indication: ENTEROCOCCAL INFECTION
     Route: 065
  7. GENTAMICIN. [Suspect]
     Active Substance: GENTAMICIN
     Indication: ENTEROCOCCAL INFECTION
     Dosage: 3 MG/KG/DAY
     Route: 065

REACTIONS (4)
  - Pathogen resistance [Recovered/Resolved]
  - Pneumonia fungal [Fatal]
  - Candida sepsis [Fatal]
  - Treatment failure [Recovered/Resolved]
